FAERS Safety Report 9907581 (Version 2)
Quarter: 2014Q2

REPORT INFORMATION
  Report Type: Spontaneous
  Country: US (occurrence: US)
  Receive Date: 20140218
  Receipt Date: 20140430
  Transmission Date: 20141212
  Serious: Yes (Other)
  Sender: FDA-Public Use
  Company Number: US-PFIZER INC-2014047662

PATIENT
  Age: 51 Year
  Sex: Female
  Weight: 56.24 kg

DRUGS (6)
  1. NEURONTIN [Suspect]
     Indication: ANXIETY
     Dosage: UNK
  2. NEURONTIN [Suspect]
     Indication: MOOD SWINGS
     Dosage: 300 MG, 3X/DAY
     Dates: start: 20131116
  3. NEURONTIN [Suspect]
     Indication: BIPOLAR DISORDER
  4. ATIVAN [Concomitant]
     Dosage: 1 MG, 3X/DAY
  5. CELEXA [Concomitant]
     Dosage: 40 MG, DAILY
  6. ZYPREXA [Concomitant]
     Indication: PSYCHOTIC DISORDER
     Dosage: 10 MG, UNK

REACTIONS (11)
  - Off label use [Not Recovered/Not Resolved]
  - Aggression [Not Recovered/Not Resolved]
  - Hostility [Not Recovered/Not Resolved]
  - Agitation [Not Recovered/Not Resolved]
  - Emotional disorder [Not Recovered/Not Resolved]
  - Crying [Not Recovered/Not Resolved]
  - Decreased appetite [Not Recovered/Not Resolved]
  - Weight decreased [Not Recovered/Not Resolved]
  - Middle insomnia [Not Recovered/Not Resolved]
  - Affective disorder [Not Recovered/Not Resolved]
  - Depression [Not Recovered/Not Resolved]
